FAERS Safety Report 21629916 (Version 1)
Quarter: 2022Q4

REPORT INFORMATION
  Report Type: Spontaneous
  Country: IT (occurrence: IT)
  Receive Date: 20221122
  Receipt Date: 20221122
  Transmission Date: 20230113
  Serious: Yes (Other)
  Sender: FDA-Public Use
  Company Number: None

PATIENT
  Age: 63 Year
  Sex: Female
  Weight: 60 kg

DRUGS (5)
  1. FLUOROURACIL [Suspect]
     Active Substance: FLUOROURACIL
     Indication: Colon cancer
     Dosage: 4000 MG/M3 AN IV BAG AS AN INFUSION OVER 48 HOURS
     Route: 042
     Dates: start: 20220830, end: 20221012
  2. IRINOTECAN [Suspect]
     Active Substance: IRINOTECAN
     Indication: Colon cancer
     Dosage: 180 MILLIGRAM, INTRAVENOUS BAG
     Route: 042
     Dates: start: 20220830, end: 20221012
  3. BEVACIZUMAB [Suspect]
     Active Substance: BEVACIZUMAB
     Indication: Colon cancer
     Dosage: 1 MILLIGRAM/KILOGRAM, 5 MG/KG IN INTRAVENOUS BAG
     Route: 042
     Dates: start: 20220830, end: 20221012
  4. LEVOLEUCOVORIN CALCIUM [Concomitant]
     Active Substance: LEVOLEUCOVORIN CALCIUM
     Indication: Chemotherapy
     Dosage: 400 MG PER CUBIC METER FOR 15 MIN IN AN IV BAG
     Route: 042
     Dates: start: 20220830, end: 20221012
  5. ONDANSETRON [Concomitant]
     Active Substance: ONDANSETRON
     Indication: Nausea
     Dosage: 8 MILLIGRAMS IN AN INTRAVENOUS BAG
     Route: 042
     Dates: start: 20220830, end: 20221012

REACTIONS (8)
  - Leukopenia [Not Recovered/Not Resolved]
  - Tremor [Recovering/Resolving]
  - Dyspepsia [Recovering/Resolving]
  - Insomnia [Recovering/Resolving]
  - Ageusia [Recovering/Resolving]
  - Paraesthesia [Recovering/Resolving]
  - Decreased appetite [Recovering/Resolving]
  - Nausea [Recovering/Resolving]

NARRATIVE: CASE EVENT DATE: 20220831
